FAERS Safety Report 5528694-8 (Version None)
Quarter: 2007Q4

REPORT INFORMATION
  Report Type: 
  Country: None (occurrence: None)
  Receive Date: 20071113
  Receipt Date: 20070601
  Transmission Date: 20080405
  Serious: Yes (Hospitalization, Other)
  Sender: FDA-Public Use
  Company Number: HQWYE475704JUN07

PATIENT
  Age: 75 Year
  Sex: Female
  Weight: 49.94 kg

DRUGS (3)
  1. INDERAL [Suspect]
     Indication: ARRHYTHMIA
     Dosage: 10 MG 4X PER 1 DAY, ORAL ; 10 MG 4X PER 1 DAY, ORAL
     Route: 048
     Dates: end: 20070530
  2. INDERAL [Suspect]
     Indication: ARRHYTHMIA
     Dosage: 10 MG 4X PER 1 DAY, ORAL ; 10 MG 4X PER 1 DAY, ORAL
     Route: 048
     Dates: start: 20070531
  3. ASPIRIN [Concomitant]

REACTIONS (3)
  - ASTHENIA [None]
  - DIZZINESS [None]
  - REACTION TO DRUG EXCIPIENTS [None]
